FAERS Safety Report 9870949 (Version 4)
Quarter: 2014Q2

REPORT INFORMATION
  Report Type: Spontaneous
  Country: US (occurrence: US)
  Receive Date: 20140205
  Receipt Date: 20140606
  Transmission Date: 20141212
  Serious: Yes (Other)
  Sender: FDA-Public Use
  Company Number: US-BAYER-2014-016766

PATIENT
  Sex: Female

DRUGS (1)
  1. BAYER ADVANCED ASPIRIN EXTRA STRENGTH [Suspect]

REACTIONS (6)
  - Disorientation [None]
  - Malaise [None]
  - Anxiety [None]
  - Asthenia [None]
  - Nausea [None]
  - Heart rate increased [None]
